FAERS Safety Report 8763299 (Version 1)
Quarter: 2012Q4

REPORT INFORMATION
  Report Type: 
  Country: US (occurrence: US)
  Receive Date: 20120830
  Receipt Date: 20120830
  Transmission Date: 20130627
  Serious: No
  Sender: FDA-Public Use
  Company Number: US-PFIZER INC-2012211602

PATIENT
  Age: 58 Year
  Sex: Female
  Weight: 65.76 kg

DRUGS (4)
  1. LYRICA [Suspect]
     Indication: FIBROMYALGIA
     Dosage: 50 mg, 1x/day
     Route: 048
     Dates: start: 20120827
  2. DILAUDID [Concomitant]
     Indication: BACK PAIN
     Dosage: UNK
  3. ALPRAZOLAM [Concomitant]
     Dosage: 1 mg, UNK
  4. CIPRO [Concomitant]
     Indication: CYSTITIS
     Dosage: UNK

REACTIONS (1)
  - Dysuria [Recovered/Resolved]
